FAERS Safety Report 7765060-9 (Version None)
Quarter: 2011Q3

REPORT INFORMATION
  Report Type: 
  Country: None (occurrence: None)
  Receive Date: 20110921
  Receipt Date: 20110912
  Transmission Date: 20111222
  Serious: Yes (Other)
  Sender: FDA-Public Use
  Company Number: US-BAYER-201033818NA

PATIENT
  Age: 20 Year
  Sex: Female
  Weight: 88.435 kg

DRUGS (15)
  1. MOTRIN [Concomitant]
     Dosage: 600 MG, UNK
     Route: 048
     Dates: start: 20040329
  2. LEXAPRO [Concomitant]
     Dosage: 10 MG, UNK
     Dates: start: 20040329
  3. DICYCLOMINE [Concomitant]
     Dosage: 20 MG, UNK
     Route: 048
     Dates: start: 20040301
  4. INDERAL LA [Concomitant]
     Dosage: 80 MG, UNK
     Route: 048
     Dates: start: 20040315
  5. ZITHROMAX [Concomitant]
     Dosage: UNK
     Dates: start: 20030331
  6. AXERT [Concomitant]
     Indication: MIGRAINE
     Dosage: UNK
     Route: 048
  7. MOTRIN [Concomitant]
     Dosage: 600 MG, UNK
     Route: 048
     Dates: start: 20040302
  8. ZITHROMAX [Concomitant]
     Dosage: UNK
     Route: 048
     Dates: start: 20040218
  9. LEXAPRO [Concomitant]
     Dosage: 10 MG, UNK
     Route: 048
     Dates: start: 20040426
  10. DARVOCET [Concomitant]
     Dosage: UNK
     Dates: start: 20040316
  11. TOPAMAX [Concomitant]
     Indication: CONVULSION
  12. BENADRYL [Concomitant]
     Dosage: 20 MG, BID
     Route: 048
     Dates: start: 20040302
  13. MOTRIN [Concomitant]
     Dosage: 600 MG, UNK
     Route: 048
     Dates: start: 20040514
  14. YASMIN [Suspect]
     Indication: POLYCYSTIC OVARIES
     Dosage: UNK
     Dates: start: 20010101, end: 20040401
  15. YASMIN [Suspect]
     Indication: MENSTRUAL CYCLE MANAGEMENT

REACTIONS (3)
  - DYSPNOEA [None]
  - PAIN [None]
  - CEREBROVASCULAR ACCIDENT [None]
